FAERS Safety Report 4947805-6 (Version None)
Quarter: 2006Q1

REPORT INFORMATION
  Report Type: 
  Country: None (occurrence: None)
  Receive Date: 20060320
  Receipt Date: 20060302
  Transmission Date: 20060701
  Serious: Yes (Death)
  Sender: FDA-Public Use
  Company Number: MA-GLAXOSMITHKLINE-B0414338A

PATIENT
  Age: 27 Year
  Sex: Female

DRUGS (3)
  1. DEROXAT [Suspect]
     Indication: DEPRESSION
     Dosage: 20MG PER DAY
     Route: 065
     Dates: start: 20060219, end: 20060227
  2. HEPTAMINOL [Concomitant]
     Indication: HYPOTENSION
     Dosage: 30DROP THREE TIMES PER DAY
     Route: 048
     Dates: start: 20060101, end: 20060227
  3. VALIUM [Concomitant]
     Indication: INSOMNIA
     Dosage: 5MG AT NIGHT
     Route: 048
     Dates: start: 20060125, end: 20060127

REACTIONS (5)
  - CARDIAC ARREST [None]
  - COMA [None]
  - DEATH [None]
  - HYPOTENSION [None]
  - MYOCLONUS [None]
